FAERS Safety Report 5360136-8 (Version None)
Quarter: 2007Q2

REPORT INFORMATION
  Report Type: 
  Country: None (occurrence: None)
  Receive Date: 20070618
  Receipt Date: 20070608
  Transmission Date: 20071010
  Serious: Yes (Other)
  Sender: FDA-Public Use
  Company Number: PHBS2007JP09832

PATIENT
  Age: 81 Year
  Sex: Female

DRUGS (1)
  1. LUDIOMIL [Suspect]
     Indication: DEPRESSION
     Dosage: 10 MG, QHS
     Route: 048

REACTIONS (3)
  - FEMUR FRACTURE [None]
  - GAIT DISTURBANCE [None]
  - SURGERY [None]
